FAERS Safety Report 9501345 (Version 1)
Quarter: 2013Q3

REPORT INFORMATION
  Report Type: Spontaneous
  Country: US (occurrence: US)
  Receive Date: 20130905
  Receipt Date: 20130905
  Transmission Date: 20140515
  Serious: Yes (Other)
  Sender: FDA-Public Use
  Company Number: US-GLAXOSMITHKLINE-A1039999A

PATIENT
  Age: 58 Year
  Sex: Male

DRUGS (1)
  1. NICORETTE NICOTINE POLACRILEX MINT LOZENGE, 4MG [Suspect]
     Indication: SMOKING CESSATION THERAPY
     Route: 002
     Dates: start: 20130831, end: 20130901

REACTIONS (7)
  - Chemical burn of gastrointestinal tract [Recovered/Resolved]
  - Oral pain [Recovered/Resolved]
  - Oral discomfort [Recovered/Resolved]
  - Eating disorder [Recovered/Resolved]
  - Oral pain [Recovered/Resolved]
  - Oral pain [Recovered/Resolved]
  - Product quality issue [Unknown]
